APPROVED DRUG PRODUCT: ESIMIL
Active Ingredient: GUANETHIDINE MONOSULFATE; HYDROCHLOROTHIAZIDE
Strength: 10MG;25MG
Dosage Form/Route: TABLET;ORAL
Application: N013553 | Product #001
Applicant: NOVARTIS PHARMACEUTICALS CORP
Approved: Approved Prior to Jan 1, 1982 | RLD: No | RS: No | Type: DISCN